FAERS Safety Report 7205377-X (Version None)
Quarter: 2010Q4

REPORT INFORMATION
  Report Type: 
  Country: None (occurrence: None)
  Receive Date: 20101231
  Receipt Date: 20101222
  Transmission Date: 20110411
  Serious: Yes (Hospitalization, Other)
  Sender: FDA-Public Use
  Company Number: US-US-EMD SERONO, INC.-7033226

PATIENT
  Sex: Female

DRUGS (3)
  1. REBIF [Suspect]
     Indication: PRODUCT USED FOR UNKNOWN INDICATION
     Route: 058
     Dates: start: 20090827
  2. METFORMIN HCL [Concomitant]
     Dates: start: 20100701
  3. DIGOXIN [Concomitant]
     Dates: start: 20100701

REACTIONS (8)
  - CYSTITIS [None]
  - DEEP VEIN THROMBOSIS [None]
  - ESCHERICHIA INFECTION [None]
  - LOCALISED INFECTION [None]
  - PULMONARY EMBOLISM [None]
  - RED BLOOD CELL COUNT DECREASED [None]
  - STAPHYLOCOCCAL INFECTION [None]
  - UPPER RESPIRATORY TRACT INFECTION [None]
